FAERS Safety Report 17057790 (Version 2)
Quarter: 2019Q4

REPORT INFORMATION
  Report Type: Spontaneous
  Country: US (occurrence: US)
  Receive Date: 20191121
  Receipt Date: 20191212
  Transmission Date: 20200122
  Serious: No
  Sender: FDA-Public Use
  Company Number: US-APOTEX-2019AP024553

PATIENT
  Sex: Female

DRUGS (1)
  1. FENTANYL. [Suspect]
     Active Substance: FENTANYL
     Indication: PRODUCT USED FOR UNKNOWN INDICATION
     Dosage: UNK, 1/72 HOURS
     Route: 062

REACTIONS (4)
  - Product physical issue [Unknown]
  - Drug ineffective [Unknown]
  - Drug screen negative [Unknown]
  - Product leakage [Unknown]
